FAERS Safety Report 8784790 (Version 2)
Quarter: 2012Q4

REPORT INFORMATION
  Report Type: 
  Country: US (occurrence: US)
  Receive Date: 20120914
  Receipt Date: 20121025
  Transmission Date: 20130627
  Serious: No
  Sender: FDA-Public Use
  Company Number: US-009507513-1209USA004424

PATIENT
  Age: 55 Year
  Sex: Female
  Weight: 86.17 kg

DRUGS (3)
  1. DULERA [Suspect]
     Indication: ASTHMA
     Dosage: 100/5 dose, 2 puffs once
     Dates: start: 201208
  2. DULERA [Suspect]
     Dosage: 100/5 dose, 2 puffs onceUNK
     Dates: start: 201208
  3. DULERA [Suspect]
     Dosage: 100/5 dose, 2 puffs once
     Dates: start: 201208, end: 201209

REACTIONS (2)
  - Speech disorder [Recovered/Resolved]
  - Dysphonia [Recovered/Resolved]
